FAERS Safety Report 9978563 (Version 1)
Quarter: 2014Q1

REPORT INFORMATION
  Report Type: Report from Study
  Country: US (occurrence: US)
  Receive Date: 20140306
  Receipt Date: 20140306
  Transmission Date: 20141002
  Serious: No
  Sender: FDA-Public Use
  Company Number: US-ABBVIE-13P-163-1171575-00

PATIENT
  Age: 31 Year
  Sex: Female

DRUGS (11)
  1. HUMIRA [Suspect]
     Indication: CROHN^S DISEASE
     Dates: start: 20131004, end: 20131004
  2. HUMIRA [Suspect]
     Dates: start: 20131005, end: 20131005
  3. HUMIRA [Suspect]
     Dates: start: 20131018, end: 20131018
  4. HUMIRA [Suspect]
  5. PREDNISONE [Concomitant]
     Indication: PRODUCT USED FOR UNKNOWN INDICATION
     Dosage: TAPERING DOSE
  6. SERTRALINE [Concomitant]
     Indication: ANXIETY
  7. RANITIDINE [Concomitant]
     Indication: NAUSEA
  8. ONDANSETRON [Concomitant]
     Indication: NAUSEA
  9. PROMETHAZINE [Concomitant]
     Indication: NAUSEA
  10. MELATONIN [Concomitant]
     Indication: INSOMNIA
     Dosage: AT BED TIME
  11. BIRTH CONTROL PILL [Concomitant]
     Indication: PRODUCT USED FOR UNKNOWN INDICATION
     Dosage: PILL

REACTIONS (3)
  - Drug dose omission [Unknown]
  - Drug dose omission [Unknown]
  - Inappropriate schedule of drug administration [Unknown]
